FAERS Safety Report 9182192 (Version 3)
Quarter: 2014Q3

REPORT INFORMATION
  Report Type: Spontaneous
  Country: DK (occurrence: DK)
  Receive Date: 20130322
  Receipt Date: 20140904
  Transmission Date: 20150326
  Serious: Yes (Disabling, Other)
  Sender: FDA-Public Use
  Company Number: DK-PFIZER INC-2013093977

PATIENT
  Age: 62 Year
  Sex: Male
  Weight: 80 kg

DRUGS (2)
  1. NAROPIN [Concomitant]
     Active Substance: ROPIVACAINE HYDROCHLORIDE
     Dates: start: 20120420, end: 20120420
  2. DEPO-MEDROL [Suspect]
     Active Substance: METHYLPREDNISOLONE ACETATE
     Indication: TENDONITIS
     Dosage: 1 ML GIVEN SUBACROMIAL ONCE
     Route: 050
     Dates: start: 20120420, end: 20120420

REACTIONS (3)
  - Chorioretinopathy [Recovered/Resolved with Sequelae]
  - Concomitant disease progression [Recovered/Resolved with Sequelae]
  - Visual acuity reduced [Not Recovered/Not Resolved]

NARRATIVE: CASE EVENT DATE: 20121112
